FAERS Safety Report 9932624 (Version 1)
Quarter: 2014Q1

REPORT INFORMATION
  Report Type: Spontaneous
  Country: US (occurrence: US)
  Receive Date: 20140228
  Receipt Date: 20140228
  Transmission Date: 20141002
  Serious: No
  Sender: FDA-Public Use
  Company Number: US-GLAXOSMITHKLINE-A1023068A

PATIENT
  Age: 25 Year
  Sex: Female

DRUGS (4)
  1. LAMOTRIGINE [Suspect]
     Indication: AGITATED DEPRESSION
     Dosage: 25MG PER DAY
     Route: 048
     Dates: start: 20130219
  2. TRAZODONE [Concomitant]
  3. SEASONIQUE [Concomitant]
  4. LORAZEPAM [Concomitant]

REACTIONS (2)
  - Alopecia [Not Recovered/Not Resolved]
  - Hirsutism [Unknown]
